FAERS Safety Report 11705157 (Version 1)
Quarter: 2015Q4

REPORT INFORMATION
  Report Type: Spontaneous
  Country: US (occurrence: US)
  Receive Date: 20151106
  Receipt Date: 20151106
  Transmission Date: 20160304
  Serious: Yes (Hospitalization)
  Sender: FDA-Public Use
  Company Number: US-PFIZER INC-2015374705

PATIENT
  Age: 86 Year
  Sex: Female
  Weight: 58 kg

DRUGS (1)
  1. PREMARIN [Suspect]
     Active Substance: ESTROGENS, CONJUGATED
     Indication: MENOPAUSAL SYMPTOMS
     Dosage: 0.3 MG, 1X/DAY
     Route: 048

REACTIONS (1)
  - Cardiac disorder [Not Recovered/Not Resolved]
